FAERS Safety Report 10882769 (Version 1)
Quarter: 2015Q1

REPORT INFORMATION
  Report Type: Spontaneous
  Country: GB (occurrence: GB)
  Receive Date: 20150303
  Receipt Date: 20150303
  Transmission Date: 20150721
  Serious: Yes (Disabling, Other)
  Sender: FDA-Public Use
  Company Number: GB-BAYER-2015-027705

PATIENT
  Age: 36 Year
  Sex: Female
  Weight: 63.5 kg

DRUGS (2)
  1. FLUCONAZOLE. [Concomitant]
     Active Substance: FLUCONAZOLE
  2. QLAIRA FILM-COATED TABLETS [Suspect]
     Active Substance: DIENOGEST\ESTRADIOL VALERATE
     Indication: PREMENSTRUAL SYNDROME
     Dosage: 1 DF, QD
     Route: 048
     Dates: start: 20150124, end: 20150209

REACTIONS (19)
  - Change of bowel habit [Recovering/Resolving]
  - Tachyphrenia [Recovering/Resolving]
  - Eructation [Recovered/Resolved]
  - Condition aggravated [Unknown]
  - Swelling face [Recovering/Resolving]
  - Rash [Recovering/Resolving]
  - Constipation [Recovered/Resolved]
  - Memory impairment [Recovering/Resolving]
  - Paranoia [Recovering/Resolving]
  - Candida infection [Not Recovered/Not Resolved]
  - Depression suicidal [Recovered/Resolved]
  - Anxiety [Recovering/Resolving]
  - Erythema [Unknown]
  - Dyspnoea [Recovered/Resolved]
  - Flatulence [Recovering/Resolving]
  - Sensory disturbance [Unknown]
  - Abdominal distension [Recovering/Resolving]
  - Peripheral swelling [Recovering/Resolving]
  - Visual impairment [Unknown]

NARRATIVE: CASE EVENT DATE: 20150128
